FAERS Safety Report 7396750-8 (Version None)
Quarter: 2011Q1

REPORT INFORMATION
  Report Type: 
  Country: None (occurrence: None)
  Receive Date: 20110325
  Receipt Date: 20110309
  Transmission Date: 20110831
  Serious: Yes (Other)
  Sender: FDA-Public Use
  Company Number: 2011P1004962

PATIENT
  Age: 93 Year
  Sex: Male

DRUGS (6)
  1. ACETAMINOPHEN [Concomitant]
  2. VITAMIN D [Concomitant]
  3. ELTROXIN [Concomitant]
  4. WARFARIN (NO PREF. NAME) [Suspect]
     Dosage: 3, 4 MG, QOD, PO
     Route: 048
     Dates: start: 20080710
  5. PREVACID [Concomitant]
  6. FERROUS GLUCONATE [Concomitant]

REACTIONS (2)
  - DISEASE PROGRESSION [None]
  - BONE MARROW FAILURE [None]
